FAERS Safety Report 8591353 (Version 3)
Quarter: 2013Q4

REPORT INFORMATION
  Report Type: Spontaneous
  Country: US (occurrence: US)
  Receive Date: 20120601
  Receipt Date: 20131112
  Transmission Date: 20140711
  Serious: Yes (Disabling, Other)
  Sender: FDA-Public Use
  Company Number: US-JNJFOC-20120519569

PATIENT
  Age: 46 Year
  Sex: Female
  Weight: 103.42 kg

DRUGS (2)
  1. LEVAQUIN [Suspect]
     Indication: RESPIRATORY TRACT INFECTION VIRAL
     Route: 048
     Dates: start: 20100717, end: 201007
  2. PREDNISONE [Suspect]
     Indication: LUNG INFECTION
     Dosage: STOPPED IN DEC
     Route: 048
     Dates: start: 20100717

REACTIONS (23)
  - Hypoxia [Unknown]
  - Lip swelling [Not Recovered/Not Resolved]
  - Abasia [Unknown]
  - Swollen tongue [Recovered/Resolved]
  - Swelling face [Recovered/Resolved]
  - Disability [Unknown]
  - Affective disorder [Unknown]
  - Tendonitis [Unknown]
  - Rotator cuff syndrome [Unknown]
  - Inflammation [Unknown]
  - Tendon rupture [Unknown]
  - Adverse drug reaction [Unknown]
  - Insomnia [Unknown]
  - Hypoaesthesia [Unknown]
  - Dyspnoea [Unknown]
  - Asthenia [Unknown]
  - Oedema mouth [Unknown]
  - Local swelling [Recovered/Resolved]
  - Pharyngeal oedema [Unknown]
  - Rash [Recovered/Resolved]
  - Paraesthesia [Unknown]
  - Weight increased [Not Recovered/Not Resolved]
  - Neuropathy peripheral [Unknown]
